FAERS Safety Report 25702561 (Version 1)
Quarter: 2025Q3

REPORT INFORMATION
  Report Type: Spontaneous
  Country: CN (occurrence: CN)
  Receive Date: 20250819
  Receipt Date: 20250819
  Transmission Date: 20251020
  Serious: Yes (Hospitalization)
  Sender: PFIZER
  Company Number: CN-PFIZER INC-PV202500099346

PATIENT
  Age: 59 Year
  Sex: Female
  Weight: 60 kg

DRUGS (12)
  1. EPIRUBICIN HYDROCHLORIDE [Suspect]
     Active Substance: EPIRUBICIN HYDROCHLORIDE
     Indication: Diffuse large B-cell lymphoma
     Dosage: 40 MG, 1X/DAY
     Route: 041
     Dates: start: 20250715, end: 20250715
  2. EPIRUBICIN HYDROCHLORIDE [Suspect]
     Active Substance: EPIRUBICIN HYDROCHLORIDE
     Dosage: 50 MG, 1X/DAY
     Route: 041
     Dates: start: 20250717, end: 20250717
  3. RITUXIMAB [Suspect]
     Active Substance: RITUXIMAB
     Indication: Diffuse large B-cell lymphoma
     Dosage: 700 MG, 1X/DAY
     Route: 041
     Dates: start: 20250719, end: 20250719
  4. RITUXIMAB [Suspect]
     Active Substance: RITUXIMAB
     Indication: Diffuse large B-cell lymphoma
     Dosage: 100 MG, 1X/DAY
     Route: 041
     Dates: start: 20250715, end: 20250715
  5. TIGECYCLINE [Suspect]
     Active Substance: TIGECYCLINE
     Indication: Anti-infective therapy
     Dosage: 50 MG, 1X/DAY
     Route: 041
     Dates: start: 20250729, end: 20250805
  6. CYCLOPHOSPHAMIDE [Suspect]
     Active Substance: CYCLOPHOSPHAMIDE
     Indication: Diffuse large B-cell lymphoma
     Dosage: 400 MG, 1X/DAY
     Route: 041
     Dates: start: 20250715, end: 20250715
  7. CYCLOPHOSPHAMIDE [Suspect]
     Active Substance: CYCLOPHOSPHAMIDE
     Dosage: 425 MG, 1X/DAY
     Route: 041
     Dates: start: 20250717, end: 20250717
  8. MEROPENEM [Suspect]
     Active Substance: MEROPENEM
     Indication: Anti-infective therapy
     Dosage: 1 G, 3X/DAY
     Route: 041
     Dates: start: 20250723, end: 20250806
  9. CASPOFUNGIN ACETATE [Suspect]
     Active Substance: CASPOFUNGIN ACETATE
     Indication: Anti-infective therapy
     Dosage: 50 MG, 1X/DAY
     Route: 041
     Dates: start: 20250725, end: 20250804
  10. METHYLPREDNISOLONE [Concomitant]
     Active Substance: METHYLPREDNISOLONE
     Indication: Diffuse large B-cell lymphoma
     Dates: start: 20250715, end: 20250719
  11. POLATUZUMAB VEDOTIN [Concomitant]
     Active Substance: POLATUZUMAB VEDOTIN
     Indication: Diffuse large B-cell lymphoma
     Dates: start: 20250718, end: 20250718
  12. SELINEXOR [Concomitant]
     Active Substance: SELINEXOR
     Dosage: 40 MG, 1X/DAY

REACTIONS (4)
  - Myelosuppression [Recovered/Resolved]
  - Infection [Recovering/Resolving]
  - Troponin increased [Recovered/Resolved]
  - Myocardial injury [Recovering/Resolving]

NARRATIVE: CASE EVENT DATE: 20250722
